FAERS Safety Report 15375942 (Version 1)
Quarter: 2018Q3

REPORT INFORMATION
  Report Type: Spontaneous
  Country: DE (occurrence: DE)
  Receive Date: 20180912
  Receipt Date: 20180912
  Transmission Date: 20181010
  Serious: Yes (Other)
  Sender: FDA-Public Use
  Company Number: DE-UCBSA-2018040468

PATIENT
  Age: 35 Year
  Sex: Male

DRUGS (4)
  1. VALPROATE [Concomitant]
     Active Substance: VALPROIC ACID
     Dosage: UNK
     Dates: start: 2011, end: 2014
  2. LEVETIRACETAM. [Suspect]
     Active Substance: LEVETIRACETAM
     Indication: PRODUCT USED FOR UNKNOWN INDICATION
     Dosage: UNK
     Dates: start: 2011, end: 2014
  3. CLONAZEPAM. [Concomitant]
     Active Substance: CLONAZEPAM
     Indication: PRODUCT USED FOR UNKNOWN INDICATION
  4. VALPROATE [Concomitant]
     Active Substance: VALPROIC ACID
     Indication: PRODUCT USED FOR UNKNOWN INDICATION
     Dosage: 1800 MG
     Dates: start: 2005, end: 2011

REACTIONS (1)
  - Myoclonic epilepsy [Unknown]
